FAERS Safety Report 9797319 (Version 1)
Quarter: 2014Q1

REPORT INFORMATION
  Report Type: Spontaneous
  Country: US (occurrence: US)
  Receive Date: 20140106
  Receipt Date: 20140106
  Transmission Date: 20141002
  Serious: Yes (Hospitalization)
  Sender: FDA-Public Use
  Company Number: US-BIOGENIDEC-2013BI124214

PATIENT
  Age: 69 Year
  Sex: Female

DRUGS (11)
  1. AVONEX [Suspect]
     Indication: MULTIPLE SCLEROSIS
     Route: 030
     Dates: start: 20120308
  2. AMBIEN [Concomitant]
  3. ASPIRIN [Concomitant]
  4. BACLOFEN [Concomitant]
  5. BENAPHEN PLUS [Concomitant]
  6. CLINDAMYCIN HCL [Concomitant]
  7. KEPPRA [Concomitant]
  8. LASIX [Concomitant]
  9. LEXAPRO [Concomitant]
  10. SENOKOT [Concomitant]
  11. TRILEPTAL [Concomitant]

REACTIONS (1)
  - Pneumonia [Unknown]
